FAERS Safety Report 19725903 (Version 1)
Quarter: 2021Q3

REPORT INFORMATION
  Report Type: Spontaneous
  Country: US (occurrence: US)
  Receive Date: 20210819
  Receipt Date: 20210819
  Transmission Date: 20211014
  Serious: No
  Sender: FDA-Public Use
  Company Number: US-MANNKIND CORPORATION-2020MK000131

PATIENT
  Age: 80 Year
  Sex: Male

DRUGS (4)
  1. AFREZZA [Suspect]
     Active Substance: INSULIN HUMAN
  2. CORTISONE [Concomitant]
     Active Substance: CORTISONE
     Indication: ARTHRITIS
     Dates: start: 20201029
  3. AFREZZA [Suspect]
     Active Substance: INSULIN HUMAN
  4. AFREZZA [Suspect]
     Active Substance: INSULIN HUMAN
     Indication: TYPE 1 DIABETES MELLITUS

REACTIONS (1)
  - Blood glucose increased [Unknown]

NARRATIVE: CASE EVENT DATE: 20201029
